FAERS Safety Report 7599775-2 (Version None)
Quarter: 2011Q3

REPORT INFORMATION
  Report Type: 
  Country: None (occurrence: None)
  Receive Date: 20110711
  Receipt Date: 20110628
  Transmission Date: 20111222
  Serious: Yes (Hospitalization)
  Sender: FDA-Public Use
  Company Number: US-BAYER-2011-018635

PATIENT
  Age: 32 Year
  Weight: 90.703 kg

DRUGS (5)
  1. EXCEDRIN (MIGRAINE) [Concomitant]
     Dosage: UNK UNK, PRN
  2. IBUPROFEN [Concomitant]
     Dosage: 200 MG, PRN
  3. YAZ [Suspect]
     Indication: CONTRACEPTION
     Dosage: UNK
     Dates: start: 20090301, end: 20090720
  4. MAXALT [Concomitant]
  5. EFFEXOR XR [Concomitant]

REACTIONS (2)
  - PAIN [None]
  - PULMONARY EMBOLISM [None]
